FAERS Safety Report 13907130 (Version 2)
Quarter: 2017Q3

REPORT INFORMATION
  Report Type: Spontaneous
  Country: IT (occurrence: IT)
  Receive Date: 20170825
  Receipt Date: 20170926
  Transmission Date: 20171127
  Serious: Yes (Congenital Anomaly, Other)
  Sender: FDA-Public Use
  Company Number: IT-MERCK KGAA-2025106

PATIENT

DRUGS (3)
  1. NOVOTHYROX [Suspect]
     Active Substance: LEVOTHYROXINE SODIUM
     Indication: PRODUCT USED FOR UNKNOWN INDICATION
  2. SEBELIPASE ALFA [Suspect]
     Active Substance: SEBELIPASE ALFA
  3. RAPAMUNE [Suspect]
     Active Substance: SIROLIMUS

REACTIONS (2)
  - Foetal exposure during pregnancy [Recovered/Resolved]
  - Limb malformation [Recovering/Resolving]

NARRATIVE: CASE EVENT DATE: 20161216
